FAERS Safety Report 8988330 (Version 1)
Quarter: 2012Q4

REPORT INFORMATION
  Report Type: Spontaneous
  Country: US (occurrence: None)
  Receive Date: 20121220
  Receipt Date: 20121220
  Transmission Date: 20130627
  Serious: No
  Sender: FDA-Public Use
  Company Number: None

PATIENT
  Age: 33 Year
  Sex: Female
  Weight: 175.09 kg

DRUGS (1)
  1. LATUDA 40 MG SUNOVION [Suspect]
     Indication: BIPOLAR DISORDER
     Route: 048
     Dates: start: 20121112, end: 20121116

REACTIONS (1)
  - Constipation [None]
